FAERS Safety Report 4811786-6 (Version None)
Quarter: 2006Q1

REPORT INFORMATION
  Report Type: 
  Country: None (occurrence: None)
  Receive Date: 20051027
  Receipt Date: 20051027
  Transmission Date: 20060701
  Serious: Yes (Hospitalization)
  Sender: FDA-Public Use
  Company Number: None

PATIENT
  Age: 61 Year
  Sex: Male
  Weight: 81.2 kg

DRUGS (11)
  1. CISPLATIN [Suspect]
     Indication: MESOTHELIOMA
     Dosage: 150MG
     Route: 042
     Dates: start: 20050624, end: 20050624
  2. PEMETREXED [Suspect]
  3. ATENOLOL [Concomitant]
  4. BISACODYL [Concomitant]
  5. DOCUSATE NA [Concomitant]
  6. CLOTRIMAZOLE [Concomitant]
  7. FUROSEMIDE [Concomitant]
  8. HYDROCODONE 5/ACETAMINOPHEN [Concomitant]
  9. MORPHINE [Concomitant]
  10. SPIRONOLACTONE [Concomitant]
  11. TEMAZEPAM [Concomitant]

REACTIONS (6)
  - HYPERKALAEMIA [None]
  - HYPERPHOSPHATAEMIA [None]
  - HYPERURICAEMIA [None]
  - NAUSEA [None]
  - RENAL FAILURE ACUTE [None]
  - VOMITING [None]
